FAERS Safety Report 4496112-7 (Version None)
Quarter: 2004Q4

REPORT INFORMATION
  Report Type: 
  Country: None (occurrence: None)
  Receive Date: 20041108
  Receipt Date: 20041102
  Transmission Date: 20050328
  Serious: Yes (Hospitalization)
  Sender: FDA-Public Use
  Company Number: NO-MERCK-0411NOR00005

PATIENT
  Age: 64 Year
  Sex: Female

DRUGS (7)
  1. VIOXX [Suspect]
     Indication: RHEUMATOID ARTHRITIS
     Route: 048
     Dates: start: 20010701, end: 20020101
  2. METHOTREXATE [Concomitant]
     Indication: RHEUMATOID ARTHRITIS
     Route: 065
  3. ESTRADIOL AND NORETHINDRONE ACETATE [Suspect]
     Indication: MENOPAUSE
     Route: 048
     Dates: end: 20011201
  4. FUROSEMIDE [Concomitant]
     Indication: HYPERTONIA
     Route: 065
     Dates: start: 19960101
  5. METOPROLOL TARTRATE [Concomitant]
     Indication: HYPERTONIA
     Route: 048
     Dates: start: 19960101
  6. LISINOPRIL [Concomitant]
     Indication: HYPERTONIA
     Route: 048
     Dates: start: 19960101
  7. INSULIN [Concomitant]
     Indication: DIABETES MELLITUS NON-INSULIN-DEPENDENT
     Route: 042
     Dates: start: 19970101

REACTIONS (4)
  - DEEP VEIN THROMBOSIS [None]
  - ERYTHEMA [None]
  - PAIN IN EXTREMITY [None]
  - SWELLING [None]
